FAERS Safety Report 7623535-7 (Version None)
Quarter: 2011Q3

REPORT INFORMATION
  Report Type: 
  Country: None (occurrence: None)
  Receive Date: 20110720
  Receipt Date: 20110707
  Transmission Date: 20111222
  Serious: Yes (Hospitalization, Other)
  Sender: FDA-Public Use
  Company Number: CA-ELI_LILLY_AND_COMPANY-CA201107001689

PATIENT
  Sex: Female

DRUGS (6)
  1. BENZTROPINE MESYLATE [Concomitant]
  2. LIPITOR [Concomitant]
  3. LEVOCARB [Concomitant]
  4. ZYPREXA ZYDIS [Suspect]
     Dosage: 10 MG, EACH EVENING
     Dates: start: 20020107, end: 20040119
  5. ZYPREXA [Suspect]
     Dosage: 10 MG, EACH EVENING
     Dates: start: 20040403, end: 20090620
  6. RAMIPRIL [Concomitant]

REACTIONS (4)
  - DIZZINESS [None]
  - HYPERGLYCAEMIA [None]
  - MYOCARDIAL INFARCTION [None]
  - CALCIUM DEFICIENCY [None]
